FAERS Safety Report 6198830-1 (Version None)
Quarter: 2009Q2

REPORT INFORMATION
  Report Type: 
  Country: None (occurrence: None)
  Receive Date: 20090522
  Receipt Date: 20090508
  Transmission Date: 20091009
  Serious: Yes (Disabling)
  Sender: FDA-Public Use
  Company Number: GB-RANBAXY-2009RR-24139

PATIENT
  Age: 37 Year
  Sex: Female
  Weight: 52 kg

DRUGS (7)
  1. OFLOXACIN [Suspect]
     Indication: PELVIC PAIN
     Dosage: 400 MG, BID
     Route: 048
     Dates: start: 20081121, end: 20081124
  2. OFLOXACIN [Suspect]
     Indication: URINARY TRACT INFECTION
  3. CEFACLOR [Concomitant]
     Indication: URINARY TRACT INFECTION
     Dosage: 500 MG, UNK
     Route: 048
     Dates: start: 20081024
  4. CHLORPROMAZINE [Concomitant]
     Dosage: 50 MG, QD
  5. CLOTRIMAZOLE [Concomitant]
     Indication: VAGINAL INFECTION
     Dosage: 500 MG, UNK
     Route: 067
     Dates: start: 20081121, end: 20081122
  6. AMOXICILLIN AND CLAVULANATE POTASSIUM [Concomitant]
     Indication: PELVIC PAIN
     Dosage: 375 MG, TID
     Route: 048
     Dates: start: 20081029, end: 20081105
  7. AMOXICILLIN AND CLAVULANATE POTASSIUM [Concomitant]
     Indication: URINARY TRACT INFECTION

REACTIONS (2)
  - INSOMNIA [None]
  - PSYCHOMOTOR HYPERACTIVITY [None]
